FAERS Safety Report 9139103 (Version 4)
Quarter: 2013Q2

REPORT INFORMATION
  Report Type: Report from Study
  Country: ES (occurrence: ES)
  Receive Date: 20130305
  Receipt Date: 20130502
  Transmission Date: 20140414
  Serious: Yes (Death, Hospitalization)
  Sender: FDA-Public Use
  Company Number: ES-CELGENEUS-144-21880-13023913

PATIENT
  Age: 85 Year
  Sex: Male
  Weight: 82 kg

DRUGS (6)
  1. REVLIMID\PLACEBO [Suspect]
     Indication: MYELODYSPLASTIC SYNDROME
     Dosage: 5 MILLIGRAM
     Route: 048
     Dates: start: 20120402, end: 20130206
  2. SPIRIVA [Concomitant]
     Indication: CHRONIC OBSTRUCTIVE PULMONARY DISEASE
     Route: 055
  3. SERETIDE [Concomitant]
     Indication: CHRONIC OBSTRUCTIVE PULMONARY DISEASE
     Route: 055
  4. ENALAPRIL [Concomitant]
     Indication: HYPERTENSION
     Dosage: 20 MILLIGRAM
     Route: 048
  5. DUODART [Concomitant]
     Indication: BENIGN PROSTATIC HYPERPLASIA
     Route: 048
  6. CLEXANE [Concomitant]
     Indication: THROMBOSIS PROPHYLAXIS
     Route: 058
     Dates: start: 20130225, end: 20130327

REACTIONS (2)
  - Respiratory failure [Fatal]
  - Lung adenocarcinoma metastatic [Not Recovered/Not Resolved]
